FAERS Safety Report 21949203 (Version 5)
Quarter: 2023Q2

REPORT INFORMATION
  Report Type: Spontaneous
  Country: US (occurrence: US)
  Receive Date: 20230203
  Receipt Date: 20230417
  Transmission Date: 20230721
  Serious: Yes (Other)
  Sender: FDA-Public Use
  Company Number: US-002147023-NVSC2023US020114

PATIENT
  Age: 60 Year
  Sex: Female
  Weight: 74.57 kg

DRUGS (13)
  1. TAFINLAR [Suspect]
     Active Substance: DABRAFENIB MESYLATE
     Indication: Ovarian cancer
     Dosage: 150 MG, Q12H (TAKE ON AN EMPTY STOMACH, 1 HR BEFORE OR 2 HRS AFTER FOOD) (120 CAPSULE REFILLS)
     Route: 048
     Dates: start: 20221218
  2. TAFINLAR [Suspect]
     Active Substance: DABRAFENIB MESYLATE
     Dosage: 150 MG, Q12H  (TAKE ON AN EMPTY STOMACH, 1 HR BEFORE OR 2 HRS AFTER FOOD) (120 CAPSULE REFILLS)
     Route: 048
     Dates: start: 20230110
  3. MEKINIST [Suspect]
     Active Substance: TRAMETINIB DIMETHYL SULFOXIDE
     Indication: Ovarian cancer
     Dosage: 2 MG, QD
     Route: 048
     Dates: start: 20221218
  4. MEKINIST [Suspect]
     Active Substance: TRAMETINIB DIMETHYL SULFOXIDE
     Dosage: 2 MG, QD
     Route: 048
     Dates: start: 20230110
  5. MEKINIST [Suspect]
     Active Substance: TRAMETINIB DIMETHYL SULFOXIDE
     Dosage: 1 MG, QD (60 TABLET REFILLS)
     Route: 065
  6. ALENDRONATE [Concomitant]
     Active Substance: ALENDRONATE SODIUM
     Indication: Product used for unknown indication
     Dosage: 70 MG, QW (1 TABLET) (QUANTITY SUFFICIENT FOR 29 DAYS, 3 REFILLS)
     Route: 048
  7. LISINOPRIL [Concomitant]
     Active Substance: LISINOPRIL
     Indication: Product used for unknown indication
     Dosage: 10 MG, QD (1 TABLET) (QUANTITY SUFFICIENT FOR 30 DAYS, 3 REFILLS)
     Route: 048
  8. SIMVASTATIN [Concomitant]
     Active Substance: SIMVASTATIN
     Indication: Product used for unknown indication
     Dosage: 40 MG, QD (1 TABLET) (EVERY DAY AT BEDTIME QUANTITY SUFFICIENT FOR 90 DAYS, 3 REFILLS)
     Route: 048
  9. VITAMIN D [Concomitant]
     Active Substance: VITAMIN D NOS
     Indication: Product used for unknown indication
     Dosage: UNK, QD
     Route: 048
  10. COMPAZINE [Concomitant]
     Active Substance: PROCHLORPERAZINE MALEATE
     Indication: Nausea
     Dosage: 10 MG, Q6H (30 TABLET REFILLS)
     Route: 048
  11. ZOFRAN [Concomitant]
     Active Substance: ONDANSETRON HYDROCHLORIDE
     Indication: Product used for unknown indication
     Dosage: UNK
     Route: 065
  12. TYLENOL [Concomitant]
     Active Substance: ACETAMINOPHEN
     Indication: Product used for unknown indication
     Dosage: UNK
     Route: 065
  13. ADVIL [Concomitant]
     Active Substance: IBUPROFEN
     Indication: Product used for unknown indication
     Dosage: UNK
     Route: 065

REACTIONS (11)
  - Chills [Recovered/Resolved]
  - Vomiting [Recovering/Resolving]
  - Dehydration [Recovered/Resolved]
  - Retching [Recovering/Resolving]
  - Hypercalcaemia [Recovered/Resolved]
  - Blood creatinine increased [Recovered/Resolved]
  - Feeding disorder [Unknown]
  - Pyrexia [Unknown]
  - Blood calcium increased [Unknown]
  - Illness [Unknown]
  - Product use in unapproved indication [Unknown]

NARRATIVE: CASE EVENT DATE: 20230119
